FAERS Safety Report 9897646 (Version 1)
Quarter: 2014Q1

REPORT INFORMATION
  Report Type: Spontaneous
  Country: ES (occurrence: ES)
  Receive Date: 20140214
  Receipt Date: 20140214
  Transmission Date: 20141002
  Serious: Yes (Other)
  Sender: FDA-Public Use
  Company Number: ES-BEH-2014040575

PATIENT
  Age: 12 Year
  Sex: Female

DRUGS (1)
  1. INTRAVENOUS IMMUNOGLOBULIN [Suspect]
     Indication: HYPOGAMMAGLOBULINAEMIA

REACTIONS (2)
  - Mycoplasma infection [Recovered/Resolved]
  - Drug effect incomplete [Recovered/Resolved]
